FAERS Safety Report 9123036 (Version 1)
Quarter: 2013Q1

REPORT INFORMATION
  Report Type: Spontaneous
  Country: PT (occurrence: PT)
  Receive Date: 20130227
  Receipt Date: 20130227
  Transmission Date: 20140127
  Serious: Yes (Other)
  Sender: FDA-Public Use
  Company Number: PT-PFIZER INC-2013064742

PATIENT
  Age: 36 Year
  Sex: Female
  Weight: 78 kg

DRUGS (3)
  1. LYRICA [Suspect]
     Indication: ANXIETY
     Route: 050
  2. DUMIROX [Concomitant]
     Indication: INSULIN RESISTANCE
     Dosage: UNK
     Dates: start: 2009
  3. FENOFIBRATE ZENTIVA [Concomitant]
     Indication: DYSLIPIDAEMIA
     Dosage: UNK
     Dates: start: 2011

REACTIONS (2)
  - Exposure via partner [Unknown]
  - Abortion spontaneous [Unknown]
